FAERS Safety Report 6970632-5 (Version None)
Quarter: 2010Q3

REPORT INFORMATION
  Report Type: 
  Country: None (occurrence: None)
  Receive Date: 20100908
  Receipt Date: 20100906
  Transmission Date: 20110219
  Serious: Yes (Death, Hospitalization, Other)
  Sender: FDA-Public Use
  Company Number: PHHY2010GT58655

PATIENT
  Age: 84 Year
  Sex: Female

DRUGS (7)
  1. EXFORGE [Suspect]
     Dosage: 5/160 MG
  2. METFORMIN [Concomitant]
  3. GLIBENCLAMIDE [Concomitant]
  4. VALDYN [Concomitant]
  5. PANTECTA [Concomitant]
  6. LYRICA [Concomitant]
  7. ENANTYUM [Concomitant]

REACTIONS (4)
  - DEATH [None]
  - HYPOGLYCAEMIA [None]
  - INFECTION [None]
  - LEG AMPUTATION [None]
